FAERS Safety Report 11005037 (Version 1)
Quarter: 2015Q2

REPORT INFORMATION
  Report Type: Spontaneous
  Country: US (occurrence: None)
  Receive Date: 20150408
  Receipt Date: 20150408
  Transmission Date: 20150821
  Serious: No
  Sender: FDA-Public Use
  Company Number: None

PATIENT
  Age: 51 Year
  Sex: Male

DRUGS (3)
  1. NAPROSYN [Concomitant]
     Active Substance: NAPROXEN
     Indication: PAIN
     Dates: start: 20131003, end: 20140117
  2. HYDROCHLOROTHIAZIDE (HCTZ) [Suspect]
     Active Substance: HYDROCHLOROTHIAZIDE
     Indication: FLUID RETENTION
     Dates: start: 20120910, end: 20140117
  3. METFORMIN [Suspect]
     Active Substance: METFORMIN HYDROCHLORIDE
     Indication: DIABETES MELLITUS
     Dates: start: 2006, end: 20140117

REACTIONS (10)
  - Pyrexia [None]
  - Cholelithiasis [None]
  - Hepatomegaly [None]
  - Jaundice [None]
  - Gastroenteritis viral [None]
  - Anaemia [None]
  - Cholestasis [None]
  - Vitamin B12 deficiency [None]
  - Chronic hepatitis [None]
  - Drug-induced liver injury [None]

NARRATIVE: CASE EVENT DATE: 20140117
